FAERS Safety Report 5382460-5 (Version None)
Quarter: 2007Q3

REPORT INFORMATION
  Report Type: 
  Country: None (occurrence: None)
  Receive Date: 20070705
  Receipt Date: 20060815
  Transmission Date: 20080115
  Serious: Yes (Hospitalization)
  Sender: FDA-Public Use
  Company Number: WAES 0608USA03598

PATIENT
  Sex: Female

DRUGS (2)
  1. HYZAAR [Suspect]
     Dosage: PO
     Route: 048
  2. THERAPY UNSPECIFIED [Concomitant]

REACTIONS (4)
  - DIZZINESS [None]
  - HEADACHE [None]
  - HYPONATRAEMIA [None]
  - NAUSEA [None]
